FAERS Safety Report 6197969-4 (Version None)
Quarter: 2009Q2

REPORT INFORMATION
  Report Type: 
  Country: None (occurrence: None)
  Receive Date: 20090521
  Receipt Date: 20090513
  Transmission Date: 20091009
  Serious: Yes (Hospitalization)
  Sender: FDA-Public Use
  Company Number: B0575000A

PATIENT
  Sex: Female
  Weight: 53 kg

DRUGS (2)
  1. VENTOLIN [Suspect]
     Indication: ATOPY
     Route: 055
  2. AXOTIDE [Concomitant]

REACTIONS (4)
  - ASTHMA [None]
  - CONDITION AGGRAVATED [None]
  - DEPRESSION [None]
  - DEVICE INEFFECTIVE [None]
